FAERS Safety Report 7015769-X (Version None)
Quarter: 2010Q3

REPORT INFORMATION
  Report Type: 
  Country: None (occurrence: None)
  Receive Date: 20100927
  Receipt Date: 20100407
  Transmission Date: 20110219
  Serious: Yes (Other)
  Sender: FDA-Public Use
  Company Number: US-ASTRAZENECA-2004UW25179

PATIENT
  Age: 85 Year
  Sex: Female
  Weight: 68 kg

DRUGS (8)
  1. ARIMIDEX [Suspect]
     Indication: BREAST CANCER
     Route: 048
     Dates: start: 20030101
  2. ACTONEL [Concomitant]
     Dates: start: 20040101
  3. HYDROCHLOROTHIAZIDE [Concomitant]
     Indication: HYPERTENSION
     Dosage: STARTED RECENTLY
  4. OMEPRAZOLE [Concomitant]
     Indication: REFLUX OESOPHAGITIS
     Route: 048
  5. LISINOPRIL [Concomitant]
  6. ARICEPT [Concomitant]
  7. VITAMINS [Concomitant]
  8. ALENDRONATE SODIUM [Concomitant]

REACTIONS (14)
  - ALOPECIA [None]
  - ASTHENIA [None]
  - BODY HEIGHT DECREASED [None]
  - CLUSTER HEADACHE [None]
  - DECREASED ACTIVITY [None]
  - DEPRESSION [None]
  - FALL [None]
  - FATIGUE [None]
  - GASTROOESOPHAGEAL REFLUX DISEASE [None]
  - HOT FLUSH [None]
  - HYPERTENSION [None]
  - INSOMNIA [None]
  - JOINT SWELLING [None]
  - SENSORY DISTURBANCE [None]
